FAERS Safety Report 7998190-7 (Version None)
Quarter: 2011Q4

REPORT INFORMATION
  Report Type: 
  Country: None (occurrence: None)
  Receive Date: 20111221
  Receipt Date: 20110331
  Transmission Date: 20120403
  Serious: No
  Sender: FDA-Public Use
  Company Number: US-GLAXOSMITHKLINE-A0921093A

PATIENT
  Age: 70 Year
  Sex: Female
  Weight: 76.8 kg

DRUGS (1)
  1. LOVAZA [Suspect]
     Indication: PRODUCT USED FOR UNKNOWN INDICATION
     Dosage: 2G PER DAY
     Route: 048
     Dates: start: 20110321

REACTIONS (3)
  - TONGUE DISCOLOURATION [None]
  - DRY MOUTH [None]
  - STOMATITIS [None]
